FAERS Safety Report 9504122 (Version 1)
Quarter: 2013Q3

REPORT INFORMATION
  Report Type: Spontaneous
  Country: NL (occurrence: NL)
  Receive Date: 20130906
  Receipt Date: 20130906
  Transmission Date: 20140515
  Serious: Yes (Other)
  Sender: FDA-Public Use
  Company Number: NL-ELI_LILLY_AND_COMPANY-NL201308009600

PATIENT
  Sex: Male

DRUGS (2)
  1. ZYPADHERA [Suspect]
     Dosage: 300 MG, 2/M
     Route: 030
  2. OXAZEPAM [Concomitant]
     Dosage: 10 MG, PRN
     Route: 065

REACTIONS (5)
  - Hallucination, visual [Unknown]
  - Delirium [Unknown]
  - Loss of consciousness [Unknown]
  - Anxiety [Unknown]
  - Somnolence [Unknown]
